FAERS Safety Report 5424991-5 (Version None)
Quarter: 2007Q3

REPORT INFORMATION
  Report Type: 
  Country: None (occurrence: None)
  Receive Date: 20070824
  Receipt Date: 20070821
  Transmission Date: 20080115
  Serious: Yes (Other)
  Sender: FDA-Public Use
  Company Number: D0054325A

PATIENT
  Sex: Male

DRUGS (1)
  1. CEFUHEXAL [Suspect]
     Dosage: 500MG TWICE PER DAY
     Route: 048

REACTIONS (3)
  - DIABETES INSIPIDUS [None]
  - POLYDIPSIA [None]
  - POLYURIA [None]
